FAERS Safety Report 20382952 (Version 1)
Quarter: 2022Q1

REPORT INFORMATION
  Report Type: Spontaneous
  Country: US (occurrence: US)
  Receive Date: 20220127
  Receipt Date: 20220127
  Transmission Date: 20220424
  Serious: No
  Sender: FDA-Public Use
  Company Number: US-CURIUM-2021000872

PATIENT

DRUGS (3)
  1. TECHNETIUM TC-99M SODIUM PERTECHNETATE [Suspect]
     Active Substance: TECHNETIUM TC-99M SODIUM PERTECHNETATE
     Dosage: UNKNOWN
     Route: 065
     Dates: start: 20211117, end: 20211117
  2. MYOVIEW [Concomitant]
     Active Substance: TECHNETIUM TC-99M TETROFOSMIN
     Dosage: UNKNOWN
     Route: 065
     Dates: start: 20211117, end: 20211117
  3. LANTHEUS [Concomitant]
     Dosage: UNKNOWN
     Route: 065
     Dates: start: 20211117, end: 20211117

REACTIONS (2)
  - Radioisotope scan abnormal [Not Recovered/Not Resolved]
  - Drug ineffective [Not Recovered/Not Resolved]

NARRATIVE: CASE EVENT DATE: 20211117
